FAERS Safety Report 7759249-2 (Version None)
Quarter: 2011Q3

REPORT INFORMATION
  Report Type: 
  Country: None (occurrence: None)
  Receive Date: 20110915
  Receipt Date: 20110907
  Transmission Date: 20111222
  Serious: Yes (Hospitalization, Disabling, Other)
  Sender: FDA-Public Use
  Company Number: 2010SP006325

PATIENT
  Age: 29 Year
  Sex: Female
  Weight: 53.978 kg

DRUGS (5)
  1. VALTREX [Concomitant]
  2. TRAMADOL HYDROCHLORIDE AND ACETAMINOPHEN [Concomitant]
  3. VENTOLIN HFA [Concomitant]
  4. NUVARING [Suspect]
     Indication: CONTRACEPTION
     Dosage: VAG
     Route: 067
     Dates: start: 20070306, end: 20070704
  5. FIORICET [Concomitant]

REACTIONS (30)
  - CEREBRAL HAEMORRHAGE [None]
  - ASTHMA [None]
  - VOCAL CORD PARALYSIS [None]
  - MEMORY IMPAIRMENT [None]
  - TENDONITIS [None]
  - VULVOVAGINITIS [None]
  - GRANULOMA [None]
  - MIGRAINE [None]
  - LOSS OF CONSCIOUSNESS [None]
  - ENCEPHALOMALACIA [None]
  - MIDDLE INSOMNIA [None]
  - CEREBRAL INFARCTION [None]
  - LARYNGEAL STENOSIS [None]
  - GRAND MAL CONVULSION [None]
  - AGITATION [None]
  - PNEUMONIA [None]
  - HEARING IMPAIRED [None]
  - PANIC ATTACK [None]
  - VISUAL ACUITY REDUCED [None]
  - GASTROOESOPHAGEAL REFLUX DISEASE [None]
  - HYPERCOAGULATION [None]
  - INTERVERTEBRAL DISC DEGENERATION [None]
  - TRANSVERSE SINUS THROMBOSIS [None]
  - PNEUMONIA ASPIRATION [None]
  - TOOTH IMPACTED [None]
  - CYST [None]
  - HYPERHIDROSIS [None]
  - FIBROCYSTIC BREAST DISEASE [None]
  - AGGRESSION [None]
  - APHASIA [None]
